FAERS Safety Report 9455494 (Version 3)
Quarter: 2013Q3

REPORT INFORMATION
  Report Type: Spontaneous
  Country: US (occurrence: US)
  Receive Date: 20130813
  Receipt Date: 20130926
  Transmission Date: 20140515
  Serious: Yes (Hospitalization, Disabling, Other)
  Sender: FDA-Public Use
  Company Number: US-009507513-1205USA02257

PATIENT
  Sex: Female
  Weight: 83.45 kg

DRUGS (4)
  1. FOSAMAX [Suspect]
     Indication: OSTEOPOROSIS
     Dosage: 70 MG, QW
     Route: 048
     Dates: start: 200401, end: 201008
  2. FOSAMAX PLUS D [Suspect]
     Indication: OSTEOPOROSIS
     Dosage: 70 MG, UNK
     Route: 048
     Dates: end: 201008
  3. HORMONES (UNSPECIFIED) [Concomitant]
     Dosage: UNK
     Dates: start: 1976
  4. ALENDRONATE SODIUM [Suspect]
     Dosage: 70 MG, UNK

REACTIONS (25)
  - Femur fracture [Not Recovered/Not Resolved]
  - Intramedullary rod insertion [Unknown]
  - Anaemia postoperative [Recovering/Resolving]
  - Internal fixation of fracture [Unknown]
  - Osteoporosis [Not Recovered/Not Resolved]
  - Stress fracture [Not Recovered/Not Resolved]
  - Low turnover osteopathy [Not Recovered/Not Resolved]
  - Device failure [Recovering/Resolving]
  - Medical device pain [Recovering/Resolving]
  - Medical device removal [Recovering/Resolving]
  - Hypertension [Unknown]
  - Blood cholesterol increased [Unknown]
  - Appendicectomy [Unknown]
  - Carpal tunnel decompression [Unknown]
  - Benign breast lump removal [Unknown]
  - Osteoarthritis [Unknown]
  - Anxiety disorder [Unknown]
  - Hypotension [Unknown]
  - Drug intolerance [Recovered/Resolved]
  - Thrombosis [Unknown]
  - Ovarian cyst [Unknown]
  - Asthma [Not Recovered/Not Resolved]
  - Treatment failure [Unknown]
  - Nausea [Recovered/Resolved]
  - Gastrooesophageal reflux disease [Unknown]
